FAERS Safety Report 9701906 (Version 1)
Quarter: 2013Q4

REPORT INFORMATION
  Report Type: Spontaneous
  Country: US (occurrence: None)
  Receive Date: 20131120
  Receipt Date: 20131120
  Transmission Date: 20140711
  Serious: Yes (Other)
  Sender: FDA-Public Use
  Company Number: None

PATIENT
  Sex: Female
  Weight: 62.6 kg

DRUGS (2)
  1. BUPROPION [Suspect]
     Indication: ANXIETY
     Route: 048
     Dates: start: 201304, end: 201311
  2. BUPROPION [Suspect]
     Indication: DEPRESSION
     Route: 048
     Dates: start: 201304, end: 201311

REACTIONS (1)
  - Drug ineffective [None]
